FAERS Safety Report 25533709 (Version 1)
Quarter: 2025Q3

REPORT INFORMATION
  Report Type: Report from Study
  Country: CA (occurrence: CA)
  Receive Date: 20250709
  Receipt Date: 20250709
  Transmission Date: 20251020
  Serious: Yes (Other)
  Sender: SANDOZ
  Company Number: CA-002147023-NVSC2022CA245000

PATIENT
  Sex: Female

DRUGS (1)
  1. HYRIMOZ [Suspect]
     Active Substance: ADALIMUMAB-ADAZ
     Indication: Colitis ulcerative
     Dosage: 40 MG, Q2W
     Route: 058
     Dates: start: 20220407

REACTIONS (9)
  - Pulmonary oedema [Unknown]
  - Pneumonitis [Unknown]
  - Bowel movement irregularity [Unknown]
  - Malaise [Unknown]
  - General physical health deterioration [Unknown]
  - Mucous stools [Recovered/Resolved]
  - Diarrhoea [Recovered/Resolved]
  - Stress [Recovered/Resolved]
  - Frequent bowel movements [Recovered/Resolved]
